FAERS Safety Report 4640100-4 (Version None)
Quarter: 2005Q1

REPORT INFORMATION
  Report Type: 
  Country: None (occurrence: None)
  Receive Date: 20050328
  Receipt Date: 20050202
  Transmission Date: 20050727
  Serious: No
  Sender: FDA-Public Use
  Company Number: USA050289749

PATIENT
  Age: 48 Year
  Sex: Female

DRUGS (1)
  1. STRATTERA [Suspect]
     Dosage: 60 MG/ 1 DAY

REACTIONS (2)
  - MENORRHAGIA [None]
  - METRORRHAGIA [None]
